FAERS Safety Report 9879615 (Version 2)
Quarter: 2014Q2

REPORT INFORMATION
  Report Type: Spontaneous
  Country: US (occurrence: US)
  Receive Date: 20140206
  Receipt Date: 20140418
  Transmission Date: 20141212
  Serious: No
  Sender: FDA-Public Use
  Company Number: US-RB-063095-14

PATIENT
  Age: 21 Year
  Sex: Female
  Weight: 51 kg

DRUGS (4)
  1. SUBOXONE TABLET [Suspect]
     Indication: DRUG DEPENDENCE
     Route: 060
     Dates: start: 200906, end: 200912
  2. PRENATAL VITAMINS [Concomitant]
     Indication: VITAMIN SUPPLEMENTATION
     Dosage: 1 TIME DAILY
     Route: 065
     Dates: start: 200906, end: 201007
  3. NICOTINE [Concomitant]
     Indication: PRODUCT USED FOR UNKNOWN INDICATION
     Dosage: 10 CIGARETTES DAILY
     Route: 055
  4. IRON SUPPLEMENT [Concomitant]
     Indication: ANAEMIA OF PREGNANCY
     Dosage: TAKES 1 TIME DAILY
     Route: 065
     Dates: start: 200906, end: 201007

REACTIONS (4)
  - Exposure via father [Recovered/Resolved]
  - Maternal exposure during pregnancy [Recovered/Resolved]
  - Gestational hypertension [Unknown]
  - Anaemia of pregnancy [Unknown]
